FAERS Safety Report 14746017 (Version 2)
Quarter: 2018Q2

REPORT INFORMATION
  Report Type: Spontaneous
  Country: CZ (occurrence: CZ)
  Receive Date: 20180411
  Receipt Date: 20180507
  Transmission Date: 20180711
  Serious: Yes (Hospitalization, Other)
  Sender: FDA-Public Use
  Company Number: CZ-MERCK KGAA-2045549

PATIENT
  Age: 41 Year
  Sex: Female

DRUGS (3)
  1. AMOXICILLIN W/CLAVULANIC ACID [Suspect]
     Active Substance: AMOXICILLIN\CLAVULANIC ACID
     Route: 048
  2. DROSPIRENONE AND ETHINYL ESTRADIOL [Suspect]
     Active Substance: DROSPIRENONE\ETHINYL ESTRADIOL
     Route: 048
  3. NOVOTHYROX [Suspect]
     Active Substance: LEVOTHYROXINE SODIUM
     Indication: HYPOTHYROIDISM
     Route: 048

REACTIONS (5)
  - Cellulitis [Recovered/Resolved]
  - Disease progression [Unknown]
  - Pyoderma gangrenosum [Recovered/Resolved]
  - Drug ineffective [Unknown]
  - Skin necrosis [Recovered/Resolved]

NARRATIVE: CASE EVENT DATE: 201707
